FAERS Safety Report 21532523 (Version 2)
Quarter: 2022Q4

REPORT INFORMATION
  Report Type: Spontaneous
  Country: CN (occurrence: CN)
  Receive Date: 20221101
  Receipt Date: 20221111
  Transmission Date: 20230113
  Serious: Yes (Other)
  Sender: FDA-Public Use
  Company Number: CN-ORGANON-O2210CHN002049

PATIENT
  Age: 55 Year
  Sex: Female

DRUGS (2)
  1. DIPROSPAN [Suspect]
     Active Substance: BETAMETHASONE DIPROPIONATE\BETAMETHASONE SODIUM PHOSPHATE
     Indication: Pain in extremity
     Dosage: 5MG:2MG/ML
     Route: 030
  2. LIDOCAINE HYDROCHLORIDE [Suspect]
     Active Substance: LIDOCAINE HYDROCHLORIDE
     Indication: Pain in extremity
     Dosage: UNK
     Route: 030

REACTIONS (10)
  - Laryngeal oedema [Unknown]
  - Chills [Unknown]
  - Nausea [Unknown]
  - Chest discomfort [Unknown]
  - Vomiting [Unknown]
  - Fasciitis [Unknown]
  - Malaise [Not Recovered/Not Resolved]
  - Dizziness [Unknown]
  - Blood pressure increased [Unknown]
  - Product use in unapproved indication [Unknown]
